FAERS Safety Report 7604139-9 (Version None)
Quarter: 2011Q3

REPORT INFORMATION
  Report Type: 
  Country: None (occurrence: None)
  Receive Date: 20110711
  Receipt Date: 20110711
  Transmission Date: 20111222
  Serious: Yes (Other)
  Sender: FDA-Public Use
  Company Number: None

PATIENT
  Age: 60 Year
  Sex: Female
  Weight: 74.8435 kg

DRUGS (1)
  1. VANCOMYCIN [Suspect]
     Indication: BACTERIAL INFECTION
     Dosage: 1.5 GM -250 ML- 2 X DAY IV DRIP
     Route: 041
     Dates: start: 20110604, end: 20110630

REACTIONS (2)
  - RASH [None]
  - DRUG HYPERSENSITIVITY [None]
